FAERS Safety Report 6550012-7 (Version None)
Quarter: 2010Q1

REPORT INFORMATION
  Report Type: 
  Country: None (occurrence: None)
  Receive Date: 20100119
  Receipt Date: 20091231
  Transmission Date: 20100710
  Serious: Yes (Hospitalization)
  Sender: FDA-Public Use
  Company Number: 2008014204

PATIENT
  Age: 62 Year
  Sex: Male

DRUGS (4)
  1. CETIRIZINE HCL [Suspect]
     Indication: PRURITUS
     Dosage: 10 MG, ORAL
     Route: 048
     Dates: start: 20071115, end: 20071121
  2. ATARAX [Suspect]
     Indication: PRURITUS
     Dosage: 100 MG (25MG, 4 IN ONE DAY) (25 MG, 4 IN 1 D), ORAL
     Route: 048
     Dates: start: 20071107, end: 20071121
  3. ACITRETIN [Suspect]
     Indication: KERATOSIS FOLLICULAR
     Dosage: 10 MG,
     Dates: start: 20071110, end: 20080108
  4. ZOPICLONE (ZOPICLONE) [Concomitant]

REACTIONS (2)
  - DERMATITIS EXFOLIATIVE [None]
  - DRUG INEFFECTIVE [None]
